FAERS Safety Report 8834277 (Version 1)
Quarter: 2012Q4

REPORT INFORMATION
  Report Type: 
  Country: US (occurrence: US)
  Receive Date: 20121010
  Receipt Date: 20121010
  Transmission Date: 20130627
  Serious: Yes (Other)
  Sender: FDA-Public Use
  Company Number: US-ASTRAZENECA-2012SE65590

PATIENT
  Age: 58 Year
  Sex: Female

DRUGS (2)
  1. SYMBICORT PMDI [Suspect]
     Dosage: 160/4.5 MCG, DAILY
     Route: 055
  2. SPIRIVA [Concomitant]

REACTIONS (3)
  - Cataract [Unknown]
  - Blindness [Unknown]
  - Urticaria [Unknown]
